FAERS Safety Report 24389830 (Version 1)
Quarter: 2024Q4

REPORT INFORMATION
  Report Type: Other
  Country: CA (occurrence: CA)
  Receive Date: 20241003
  Receipt Date: 20241003
  Transmission Date: 20250115
  Serious: Yes (Other)
  Sender: APOTEX
  Company Number: CA-APOTEX-2024AP011403

PATIENT
  Age: 59 Year
  Sex: Female

DRUGS (7)
  1. CARBAMAZEPINE [Interacting]
     Active Substance: CARBAMAZEPINE
     Indication: Product used for unknown indication
     Dosage: 700 MILLIGRAM, QD
     Route: 048
  2. CARBAMAZEPINE [Interacting]
     Active Substance: CARBAMAZEPINE
     Dosage: 600 MILLIGRAM, QD
     Route: 048
  3. XCOPRI [Interacting]
     Active Substance: CENOBAMATE
     Indication: Partial seizures
     Dosage: 25 MILLIGRAM, QD
     Route: 048
  4. XCOPRI [Interacting]
     Active Substance: CENOBAMATE
     Indication: Epilepsy
     Dosage: 150 MILLIGRAM, QD
     Route: 048
  5. XCOPRI [Interacting]
     Active Substance: CENOBAMATE
     Dosage: 50 MILLIGRAM, QD
     Route: 048
  6. XCOPRI [Interacting]
     Active Substance: CENOBAMATE
     Dosage: 12.5 MILLIGRAM, QD
     Route: 048
  7. XCOPRI [Interacting]
     Active Substance: CENOBAMATE
     Dosage: 100 MILLIGRAM, QD
     Route: 048

REACTIONS (16)
  - Seizure [Unknown]
  - Communication disorder [Unknown]
  - Drug interaction [Unknown]
  - Drug tolerance decreased [Unknown]
  - Dysstasia [Unknown]
  - Flatulence [Unknown]
  - Immobile [Unknown]
  - Seizure [Unknown]
  - Thinking abnormal [Unknown]
  - Vertigo [Unknown]
  - Weight decreased [Unknown]
  - Abdominal pain upper [Unknown]
  - Diplopia [Unknown]
  - Dizziness [Unknown]
  - Fatigue [Unknown]
  - Headache [Unknown]
